FAERS Safety Report 9890827 (Version 3)
Quarter: 2014Q1

REPORT INFORMATION
  Report Type: Spontaneous
  Country: US (occurrence: US)
  Receive Date: 20140212
  Receipt Date: 20140307
  Transmission Date: 20141002
  Serious: Yes (Hospitalization)
  Sender: FDA-Public Use
  Company Number: US-ASTELLAS-2013US012928

PATIENT
  Age: 66 Year
  Sex: Male

DRUGS (2)
  1. XTANDI [Suspect]
     Indication: PROSTATE CANCER
     Dosage: 160 MG, UID/QD
     Route: 048
     Dates: start: 20131030
  2. XTANDI [Suspect]
     Indication: BONE CANCER

REACTIONS (5)
  - Neuropathy peripheral [Unknown]
  - Rash pruritic [Unknown]
  - Pain in extremity [Unknown]
  - Ischaemia [Recovered/Resolved]
  - Anaemia [Recovered/Resolved]
